FAERS Safety Report 7950842-0 (Version None)
Quarter: 2011Q4

REPORT INFORMATION
  Report Type: 
  Country: None (occurrence: None)
  Receive Date: 20111201
  Receipt Date: 20111121
  Transmission Date: 20120403
  Serious: Yes (Hospitalization)
  Sender: FDA-Public Use
  Company Number: US-BIOGENIDEC-2010BI041327

PATIENT
  Age: 64 Year
  Sex: Female

DRUGS (2)
  1. TYSABRI [Suspect]
     Indication: MULTIPLE SCLEROSIS
     Route: 042
     Dates: start: 20080414, end: 20101020
  2. CYMBALTA [Concomitant]
     Indication: FIBROMYALGIA

REACTIONS (24)
  - FALL [None]
  - SPINAL FRACTURE [None]
  - ORAL CANDIDIASIS [None]
  - UPPER RESPIRATORY TRACT CONGESTION [None]
  - ANAEMIA [None]
  - COUGH [None]
  - FIBROMYALGIA [None]
  - MUSCULAR WEAKNESS [None]
  - URINARY TRACT INFECTION [None]
  - KLEBSIELLA SEPSIS [None]
  - MULTIPLE SCLEROSIS [None]
  - PNEUMONIA [None]
  - GAIT DISTURBANCE [None]
  - COMPRESSION FRACTURE [None]
  - TYPE 2 DIABETES MELLITUS [None]
  - ABASIA [None]
  - BRONCHITIS [None]
  - VISUAL IMPAIRMENT [None]
  - ASTHENIA [None]
  - PNEUMONIA KLEBSIELLA [None]
  - PYREXIA [None]
  - DEHYDRATION [None]
  - PAIN [None]
  - LOSS OF CONTROL OF LEGS [None]
